FAERS Safety Report 4712946-5 (Version None)
Quarter: 2005Q3

REPORT INFORMATION
  Report Type: 
  Country: None (occurrence: None)
  Receive Date: 20050711
  Receipt Date: 20050627
  Transmission Date: 20060218
  Serious: Yes (Hospitalization)
  Sender: FDA-Public Use
  Company Number: 2005-00395

PATIENT
  Age: 59 Year
  Sex: Male
  Weight: 80 kg

DRUGS (5)
  1. VELCADE [Suspect]
     Indication: MULTIPLE MYELOMA
     Dosage: 2.55 MG, INTRAVENOUS
     Route: 042
     Dates: start: 20050111, end: 20050415
  2. VENTOLIN [Concomitant]
  3. COUGH AND COLD PREPARATIONS [Concomitant]
  4. SENKOT (SENNA FRUIT) [Concomitant]
  5. COLACE (DOCUSATE SODIUM) [Concomitant]

REACTIONS (11)
  - ABDOMINAL DISTENSION [None]
  - ANAEMIA [None]
  - ATELECTASIS [None]
  - ELECTROCARDIOGRAM PR SHORTENED [None]
  - ELECTROCARDIOGRAM ST SEGMENT ELEVATION [None]
  - LEUKOPENIA [None]
  - PERICARDITIS [None]
  - PNEUMONIA [None]
  - TACHYCARDIA [None]
  - THROMBOCYTOPENIA [None]
  - VIRAL INFECTION [None]
